FAERS Safety Report 17499254 (Version 1)
Quarter: 2020Q1

REPORT INFORMATION
  Report Type: Spontaneous
  Country: NL (occurrence: NL)
  Receive Date: 20200305
  Receipt Date: 20200305
  Transmission Date: 20200409
  Serious: Yes (Other)
  Sender: FDA-Public Use
  Company Number: NL-SUN PHARMACEUTICAL INDUSTRIES LTD-2020RR-239170

PATIENT
  Sex: Male

DRUGS (2)
  1. METHIMAZOLE. [Suspect]
     Active Substance: METHIMAZOLE
     Indication: BASEDOW^S DISEASE
     Dosage: 0.4 MILLIGRAM/KILOGRAM, UNK
     Route: 065
  2. LEVOTHYROXYNE [Concomitant]
     Indication: BASEDOW^S DISEASE
     Dosage: 137 MICROGRAM, UNK
     Route: 065

REACTIONS (1)
  - Small fibre neuropathy [Recovered/Resolved]
